FAERS Safety Report 7293611-X (Version None)
Quarter: 2011Q1

REPORT INFORMATION
  Report Type: 
  Country: None (occurrence: None)
  Receive Date: 20110215
  Receipt Date: 20110211
  Transmission Date: 20110831
  Serious: Yes (Death)
  Sender: FDA-Public Use
  Company Number: A0878753A

PATIENT
  Sex: Female

DRUGS (1)
  1. VOTRIENT [Suspect]
     Dosage: 800MG PER DAY
     Route: 048
     Dates: start: 20100605, end: 20101201

REACTIONS (8)
  - VISUAL IMPAIRMENT [None]
  - THERAPEUTIC RESPONSE UNEXPECTED [None]
  - DECREASED APPETITE [None]
  - SARCOMA [None]
  - NAUSEA [None]
  - OEDEMA [None]
  - HAIR COLOUR CHANGES [None]
  - FATIGUE [None]
